FAERS Safety Report 22157900 (Version 1)
Quarter: 2023Q1

REPORT INFORMATION
  Report Type: Spontaneous
  Country: DK (occurrence: DK)
  Receive Date: 20230330
  Receipt Date: 20230330
  Transmission Date: 20230418
  Serious: Yes (Hospitalization)
  Sender: FDA-Public Use
  Company Number: None

PATIENT
  Sex: Male
  Weight: 80 kg

DRUGS (1)
  1. MESALAMINE [Suspect]
     Active Substance: MESALAMINE
     Indication: Colitis ulcerative
     Dosage: 2 G, QD, SUPPOSITORY
     Dates: end: 20191127

REACTIONS (2)
  - Myopericarditis [Unknown]
  - Chest pain [Unknown]

NARRATIVE: CASE EVENT DATE: 20191022
